FAERS Safety Report 6471707-X (Version None)
Quarter: 2009Q4

REPORT INFORMATION
  Report Type: 
  Country: None (occurrence: None)
  Receive Date: 20091203
  Receipt Date: 20080715
  Transmission Date: 20100525
  Serious: Yes (Hospitalization, Other)
  Sender: FDA-Public Use
  Company Number: US-ELI_LILLY_AND_COMPANY-US200803003273

PATIENT
  Age: 74 Year
  Sex: Female

DRUGS (4)
  1. HUMULIN N [Suspect]
     Dates: start: 19880101
  2. HUMULIN R [Suspect]
     Dates: end: 20071101
  3. NOVOLOG [Concomitant]
     Dates: start: 20071101
  4. LIPITOR [Concomitant]

REACTIONS (8)
  - ADVERSE DRUG REACTION [None]
  - ARTHRITIS [None]
  - BLOOD CHOLESTEROL INCREASED [None]
  - BLOOD PRESSURE ABNORMAL [None]
  - HIP ARTHROPLASTY [None]
  - HYPERTENSION [None]
  - MYOCARDIAL INFARCTION [None]
  - THYROID DISORDER [None]
